FAERS Safety Report 9140747 (Version 1)
Quarter: 2013Q1

REPORT INFORMATION
  Report Type: Other
  Country: US (occurrence: US)
  Receive Date: 20130305
  Receipt Date: 20130305
  Transmission Date: 20140127
  Serious: Yes (Death)
  Sender: FDA-Public Use
  Company Number: US-ENDO PHARMACEUTICALS INC.-OPIR20120005

PATIENT
  Age: 66 Year
  Sex: Male

DRUGS (6)
  1. OPANA [Suspect]
     Indication: DRUG ABUSE
     Dosage: UNK
  2. HYDROCODONE/ACETAMINOPHEN [Suspect]
     Indication: DRUG ABUSE
     Dosage: UNK
  3. DIAZEPAM [Suspect]
     Indication: DRUG ABUSE
     Dosage: UNK
  4. TRAZODONE HYDROCHLORIDE [Suspect]
     Indication: DRUG ABUSE
     Dosage: UNK
  5. METHAMPHETAMINE [Suspect]
     Indication: DRUG ABUSE
     Dosage: UNK
  6. MIRTAZAPINE [Suspect]
     Indication: DRUG ABUSE
     Dosage: UNK

REACTIONS (2)
  - Cardio-respiratory arrest [None]
  - Drug abuse [None]
